FAERS Safety Report 7969656-0 (Version None)
Quarter: 2011Q4

REPORT INFORMATION
  Report Type: 
  Country: None (occurrence: None)
  Receive Date: 20111208
  Receipt Date: 20111129
  Transmission Date: 20120403
  Serious: Yes (Hospitalization, Other)
  Sender: FDA-Public Use
  Company Number: 2011MA003501

PATIENT
  Sex: Female
  Weight: 72.5755 kg

DRUGS (44)
  1. METOCLOPRAMIDE [Suspect]
     Indication: GASTROOESOPHAGEAL REFLUX DISEASE
     Dosage: 10 MG;TID;
     Dates: start: 19990101, end: 20080903
  2. METOCLOPRAMIDE [Suspect]
     Indication: ULCER
     Dosage: 10 MG;TID;
     Dates: start: 19990101, end: 20080903
  3. METOCLOPRAMIDE [Suspect]
     Indication: HAEMORRHAGE
     Dosage: 10 MG;TID;
     Dates: start: 19990101, end: 20080903
  4. NASACORT [Concomitant]
  5. PRO-BANTHINE [Concomitant]
  6. BUPROPION HCL [Concomitant]
  7. QUINAPRIL [Concomitant]
  8. HALDOL [Concomitant]
  9. SERTRALINE HYDROCHLORIDE [Concomitant]
  10. BUSPAR [Concomitant]
  11. PRILOSEC [Concomitant]
  12. PROPULSID [Concomitant]
  13. ACIPHEX [Concomitant]
  14. ACETAMINOPHEN [Concomitant]
  15. CARISOPRODOL [Concomitant]
  16. QUINAPRIL [Concomitant]
  17. ZANTAC [Concomitant]
  18. PROZAC [Concomitant]
  19. DARVOCET [Concomitant]
  20. ZOLOFT [Concomitant]
  21. OXYTRAL PATCH [Concomitant]
  22. VICODIN [Concomitant]
  23. ACETAMINOPHEN AND HYDROCODONE BITARTRATE [Concomitant]
  24. DICLOFENAC SODIUM [Concomitant]
  25. ACETAMINOPHEN AND CODEINE PHOSPHATE #3 [Concomitant]
  26. TRAMADOL HCL [Concomitant]
  27. ULTRAM [Concomitant]
  28. XANAX [Concomitant]
  29. CLONAZEPAM [Concomitant]
  30. ALPRAZOLAM [Concomitant]
  31. LYRICA [Concomitant]
  32. SOMA [Concomitant]
  33. HYDROCODONE [Concomitant]
  34. FAMOTIDINE [Concomitant]
  35. TRIAMTERENE [Concomitant]
  36. NEXIUM [Concomitant]
  37. HYDROCHLOROTHIAZIDE [Concomitant]
  38. DILTIAZEM HCL [Concomitant]
  39. ATENOLOL [Concomitant]
  40. TORADOL [Concomitant]
  41. BENICAR [Concomitant]
  42. CLINDAMYCIN [Concomitant]
  43. FAMOTIDINE [Concomitant]
  44. CHANTIX [Concomitant]

REACTIONS (53)
  - EMOTIONAL DISORDER [None]
  - DYSTONIA [None]
  - TORTICOLLIS [None]
  - BACK PAIN [None]
  - HYPERTENSION [None]
  - MYALGIA [None]
  - ROAD TRAFFIC ACCIDENT [None]
  - BRONCHITIS [None]
  - MIGRAINE [None]
  - DYSPNOEA [None]
  - TARDIVE DYSKINESIA [None]
  - EXTRAPYRAMIDAL DISORDER [None]
  - AEROPHAGIA [None]
  - THERAPY CESSATION [None]
  - VOMITING [None]
  - MUSCULOSKELETAL PAIN [None]
  - ECONOMIC PROBLEM [None]
  - MUSCULAR WEAKNESS [None]
  - GASTROOESOPHAGEAL REFLUX DISEASE [None]
  - FACIAL BONES FRACTURE [None]
  - HYPERTONIC BLADDER [None]
  - IMPAIRED WORK ABILITY [None]
  - FIBROMYALGIA [None]
  - REGURGITATION [None]
  - SPEECH DISORDER [None]
  - MUSCLE STRAIN [None]
  - PEPTIC ULCER [None]
  - INSOMNIA [None]
  - DYSPEPSIA [None]
  - ULCER HAEMORRHAGE [None]
  - LIGAMENT DISORDER [None]
  - POOR QUALITY SLEEP [None]
  - AFFECTIVE DISORDER [None]
  - NICOTINE DEPENDENCE [None]
  - HYPERTONIA [None]
  - DYSARTHRIA [None]
  - DYSPHAGIA [None]
  - CONSTIPATION [None]
  - SINUSITIS [None]
  - SOMNOLENCE [None]
  - ARTHRALGIA [None]
  - CONDITION AGGRAVATED [None]
  - PHOTOPHOBIA [None]
  - TREATMENT NONCOMPLIANCE [None]
  - URGE INCONTINENCE [None]
  - UPPER RESPIRATORY TRACT INFECTION [None]
  - ASTHENIA [None]
  - FALL [None]
  - ANXIETY [None]
  - PAIN [None]
  - WEIGHT DECREASED [None]
  - APATHY [None]
  - DEPRESSION [None]
